FAERS Safety Report 25428178 (Version 2)
Quarter: 2025Q2

REPORT INFORMATION
  Report Type: Report from Study
  Country: CA (occurrence: CA)
  Receive Date: 20250612
  Receipt Date: 20250620
  Transmission Date: 20250717
  Serious: Yes (Other)
  Sender: HLS THERAPEUTICS
  Company Number: CA-HLS-202501471

PATIENT
  Sex: Male

DRUGS (2)
  1. CLOZARIL [Suspect]
     Active Substance: CLOZAPINE
     Indication: Product used for unknown indication
     Dosage: 650 MG TOTAL DAILY DOSE
     Route: 048
     Dates: start: 20050426
  2. CLOBAZAM [Concomitant]
     Active Substance: CLOBAZAM
     Indication: Seizure
     Route: 065

REACTIONS (4)
  - Hallucination, auditory [Unknown]
  - Delusion [Unknown]
  - Seizure [Unknown]
  - Psychotic symptom [Unknown]
